FAERS Safety Report 5394468-4 (Version None)
Quarter: 2007Q3

REPORT INFORMATION
  Report Type: 
  Country: None (occurrence: None)
  Receive Date: 20070723
  Receipt Date: 20070418
  Transmission Date: 20080115
  Serious: No
  Sender: FDA-Public Use
  Company Number: US-AMGEN-US220224

PATIENT
  Age: 83 Year
  Sex: Female

DRUGS (3)
  1. VECTIBIX [Suspect]
     Indication: COLORECTAL CANCER
     Route: 065
  2. FERROUS SULFATE [Concomitant]
     Route: 065
  3. WARFARIN SODIUM [Concomitant]
     Indication: COLORECTAL CANCER
     Route: 065

REACTIONS (1)
  - DEAFNESS [None]
